FAERS Safety Report 21771347 (Version 1)
Quarter: 2022Q4

REPORT INFORMATION
  Report Type: Spontaneous
  Country: US (occurrence: None)
  Receive Date: 20221223
  Receipt Date: 20221223
  Transmission Date: 20230112
  Serious: No
  Sender: FDA-Public Use
  Company Number: 2022A394361

PATIENT
  Sex: Female
  Weight: 86.2 kg

DRUGS (1)
  1. BYDUREON BCISE [Suspect]
     Active Substance: EXENATIDE
     Indication: Type 2 diabetes mellitus
     Dosage: 2 MG, SUBCUTANEOUS, ONCE A WEEK, ABOUT 4 MONTHS AGO
     Route: 058

REACTIONS (3)
  - Blood glucose fluctuation [Not Recovered/Not Resolved]
  - Product dose omission issue [Unknown]
  - Device delivery system issue [Unknown]
